FAERS Safety Report 25205665 (Version 7)
Quarter: 2025Q4

REPORT INFORMATION
  Report Type: Report from Study
  Country: US (occurrence: US)
  Receive Date: 20250417
  Receipt Date: 20251114
  Transmission Date: 20260117
  Serious: No
  Sender: DECIPHERA PHARMACEUTICALS
  Company Number: US-DECIPHERA PHARMACEUTICALS LLC-2025US000329

PATIENT
  Age: 51 Year
  Sex: Female

DRUGS (3)
  1. ROMVIMZA [Suspect]
     Active Substance: VIMSELTINIB
     Indication: Connective tissue neoplasm
     Dosage: 30 MILLIGRAM, TWICE WEEKLY
     Dates: start: 20250325, end: 2025
  2. ROMVIMZA [Suspect]
     Active Substance: VIMSELTINIB
     Indication: Soft tissue neoplasm
     Dosage: 30 MILLIGRAM, TWICE WEEKLY
     Dates: start: 20250408, end: 2025
  3. ROMVIMZA [Suspect]
     Active Substance: VIMSELTINIB
     Dosage: 20 MILLIGRAM, TWICE WEEKLY
     Dates: start: 2025, end: 2025

REACTIONS (12)
  - Somnolence [Unknown]
  - Toxicity to various agents [Unknown]
  - Arthritis [Unknown]
  - Swelling face [Not Recovered/Not Resolved]
  - Urinary tract infection [Unknown]
  - Weight increased [Unknown]
  - Headache [Unknown]
  - Musculoskeletal disorder [Unknown]
  - Periorbital swelling [Not Recovered/Not Resolved]
  - Fatigue [Not Recovered/Not Resolved]
  - Generalised oedema [Not Recovered/Not Resolved]
  - Product dose omission issue [Unknown]

NARRATIVE: CASE EVENT DATE: 20250101
